FAERS Safety Report 13930691 (Version 1)
Quarter: 2017Q3

REPORT INFORMATION
  Report Type: Spontaneous
  Country: US (occurrence: US)
  Receive Date: 20170901
  Receipt Date: 20170901
  Transmission Date: 20171127
  Serious: Yes (Hospitalization, Other)
  Sender: FDA-Public Use
  Company Number: US-BAXTER-2017BAX030840

PATIENT
  Age: 21 Year
  Sex: Male

DRUGS (2)
  1. 0.9% SODIUM CHLORIDE INJECTION [Suspect]
     Active Substance: SODIUM CHLORIDE
     Indication: DIABETIC KETOACIDOSIS
     Dosage: NORMAL SALINE
     Route: 065
  2. INSULIN [Concomitant]
     Active Substance: INSULIN NOS
     Indication: DIABETIC KETOACIDOSIS
     Dosage: INFUSION
     Route: 042

REACTIONS (1)
  - Acidosis hyperchloraemic [Recovered/Resolved]
